FAERS Safety Report 15283640 (Version 1)
Quarter: 2018Q3

REPORT INFORMATION
  Report Type: Spontaneous
  Country: US (occurrence: US)
  Receive Date: 20180731
  Receipt Date: 20180731
  Transmission Date: 20181010
  Serious: No
  Sender: FDA-Public Use
  Company Number: None

PATIENT
  Age: 20 Year
  Sex: Female

DRUGS (1)
  1. ILARIS [Suspect]
     Active Substance: CANAKINUMAB
     Indication: JUVENILE IDIOPATHIC ARTHRITIS
     Dosage: ?          OTHER FREQUENCY:EVERY 28 DAYS ;?
     Dates: start: 20170113

REACTIONS (4)
  - Stress [None]
  - Vertigo [None]
  - Chest discomfort [None]
  - Upper respiratory tract infection [None]

NARRATIVE: CASE EVENT DATE: 20180723
